FAERS Safety Report 25653549 (Version 1)
Quarter: 2025Q3

REPORT INFORMATION
  Report Type: Report from Study
  Country: US (occurrence: US)
  Receive Date: 20250807
  Receipt Date: 20250807
  Transmission Date: 20251021
  Serious: No
  Sender: DECIPHERA PHARMACEUTICALS
  Company Number: US-DECIPHERA PHARMACEUTICALS LLC-2025US000883

PATIENT
  Age: 90 Year
  Sex: Male

DRUGS (1)
  1. QINLOCK [Suspect]
     Active Substance: RIPRETINIB
     Indication: Neoplasm malignant
     Dosage: 150 MILLIGRAM, QD
     Route: 048
     Dates: start: 20240829

REACTIONS (6)
  - Purpura [Unknown]
  - Dysphagia [Unknown]
  - Somnolence [Unknown]
  - Nausea [Unknown]
  - Diarrhoea [Unknown]
  - Product use in unapproved indication [Unknown]
